FAERS Safety Report 8377993-3 (Version None)
Quarter: 2012Q2

REPORT INFORMATION
  Report Type: 
  Country: None (occurrence: None)
  Receive Date: 20120522
  Receipt Date: 20120507
  Transmission Date: 20120825
  Serious: Yes (Hospitalization)
  Sender: FDA-Public Use
  Company Number: JP-JNJFOC-20120108790

PATIENT
  Sex: Male
  Weight: 21.32 kg

DRUGS (6)
  1. MAGNESIUM SULFATE [Concomitant]
     Indication: PRODUCT USED FOR UNKNOWN INDICATION
     Route: 048
     Dates: end: 20120118
  2. RISPERDAL [Suspect]
     Indication: SCHIZOPHRENIA
     Route: 048
     Dates: end: 20120119
  3. NITRAZEPAM [Concomitant]
     Indication: PRODUCT USED FOR UNKNOWN INDICATION
     Route: 048
     Dates: end: 20120118
  4. LEVOMEPROMAZINE MALEATE [Suspect]
     Indication: SCHIZOPHRENIA
     Route: 048
     Dates: end: 20120118
  5. AKINETON [Concomitant]
     Indication: GAIT DISTURBANCE
     Route: 048
     Dates: end: 20120118
  6. RISPERDAL [Suspect]
     Route: 048
     Dates: end: 20120118

REACTIONS (9)
  - HAEMORRHAGIC DIATHESIS [None]
  - PANCYTOPENIA [None]
  - ABASIA [None]
  - PNEUMONIA [None]
  - BEDRIDDEN [None]
  - GRANULOCYTOPENIA [None]
  - ANAEMIA [None]
  - HYPOTHERMIA [None]
  - BRADYCARDIA [None]
